FAERS Safety Report 25587797 (Version 1)
Quarter: 2025Q3

REPORT INFORMATION
  Report Type: Spontaneous
  Country: US (occurrence: US)
  Receive Date: 20250721
  Receipt Date: 20250721
  Transmission Date: 20251021
  Serious: Yes (Hospitalization)
  Sender: FRESENIUS MEDICAL CARE
  Company Number: US-FMCRTG-FMC-2507-001114

PATIENT
  Age: 63 Year
  Sex: Male
  Weight: 75 kg

DRUGS (18)
  1. DELFLEX WITH DEXTROSE 2.5% LOW MAGNESIUM LOW CALCIUM [Suspect]
     Active Substance: CALCIUM CHLORIDE\DEXTROSE\MAGNESIUM CHLORIDE\SODIUM CHLORIDE\SODIUM LACTATE
     Indication: End stage renal disease
     Route: 033
  2. AMLODIPINE [Concomitant]
     Active Substance: AMLODIPINE BESYLATE
     Indication: Essential hypertension
  3. COREG [Concomitant]
     Active Substance: CARVEDILOL
     Indication: Essential hypertension
  4. CLONIDINE [Concomitant]
     Active Substance: CLONIDINE
     Indication: Essential hypertension
  5. HYDRALAZINE [Concomitant]
     Active Substance: HYDRALAZINE HYDROCHLORIDE
     Indication: Essential hypertension
  6. ATORVASTATIN [Concomitant]
     Active Substance: ATORVASTATIN
     Indication: Hyperlipidaemia
  7. PANTOPRAZOLE [Concomitant]
     Active Substance: PANTOPRAZOLE
     Indication: Hypertension
  8. SIMVASTATIN [Concomitant]
     Active Substance: SIMVASTATIN
     Indication: Hyperlipidaemia
  9. ACETAMINOPHEN [Concomitant]
     Active Substance: ACETAMINOPHEN
  10. ALLOPURINOL [Concomitant]
     Active Substance: ALLOPURINOL
     Indication: Hypertension
  11. CALCITRIOL [Concomitant]
     Active Substance: CALCITRIOL
     Indication: Hypertension
  12. LATANOPROST [Concomitant]
     Active Substance: LATANOPROST
  13. POTASSIUM CHLORIDE [Concomitant]
     Active Substance: POTASSIUM CHLORIDE
  14. SEVELAMER CARBONATE [Concomitant]
     Active Substance: SEVELAMER CARBONATE
  15. SILDENAFIL [Concomitant]
     Active Substance: SILDENAFIL
  16. SUCROFERRIC OXYHYDROXIDE [Concomitant]
     Active Substance: SUCROFERRIC OXYHYDROXIDE
  17. TORSEMIDE [Concomitant]
     Active Substance: TORSEMIDE
  18. RYBELSUS [Concomitant]
     Active Substance: SEMAGLUTIDE

REACTIONS (5)
  - Mental status changes [Unknown]
  - Peritonitis [Unknown]
  - Urinary tract infection [Unknown]
  - Hypervolaemia [Unknown]
  - Umbilical hernia [Unknown]
